FAERS Safety Report 13597498 (Version 2)
Quarter: 2017Q3

REPORT INFORMATION
  Report Type: Spontaneous
  Country: GB (occurrence: GB)
  Receive Date: 20170531
  Receipt Date: 20170719
  Transmission Date: 20171127
  Serious: Yes (Hospitalization)
  Sender: FDA-Public Use
  Company Number: GB-ROCHE-1941684

PATIENT
  Age: 0 Day
  Sex: Male
  Weight: 4.49 kg

DRUGS (5)
  1. XOLAIR [Suspect]
     Active Substance: OMALIZUMAB
     Dosage: MATERNAL DOSE RECEIVED ON 15/JUL/2016.
     Route: 064
  2. XOLAIR [Suspect]
     Active Substance: OMALIZUMAB
     Dosage: MATERNAL DOSE RECEIVED ON 07/OCT/2016
     Route: 064
  3. XOLAIR [Suspect]
     Active Substance: OMALIZUMAB
     Dosage: MATERNAL DOSE RECEIVED ON 12/AUG/2016
     Route: 064
  4. XOLAIR [Suspect]
     Active Substance: OMALIZUMAB
     Indication: PRODUCT USED FOR UNKNOWN INDICATION
     Dosage: MATERNAL DOSE: 300 MG/MONTH ON 26/FEB/2016.
     Route: 064
  5. XOLAIR [Suspect]
     Active Substance: OMALIZUMAB
     Dosage: MATERNAL DOSE RECEIVED ON 09/SEP/2016
     Route: 064

REACTIONS (4)
  - Sepsis neonatal [Recovered/Resolved]
  - Jaundice neonatal [Recovered/Resolved]
  - Shoulder dystocia [Recovered/Resolved]
  - Foetal exposure during pregnancy [Unknown]

NARRATIVE: CASE EVENT DATE: 20170402
